FAERS Safety Report 21058403 (Version 1)
Quarter: 2022Q3

REPORT INFORMATION
  Report Type: Spontaneous
  Country: CN (occurrence: None)
  Receive Date: 20220708
  Receipt Date: 20220708
  Transmission Date: 20221027
  Serious: Yes (Hospitalization)
  Sender: FDA-Public Use
  Company Number: 2022A244183

PATIENT
  Age: 24472 Day
  Sex: Male
  Weight: 66 kg

DRUGS (1)
  1. IMFINZI [Suspect]
     Active Substance: DURVALUMAB
     Indication: Neoplasm
     Dosage: ONCE EVERY 21 DAYS
     Route: 041
     Dates: start: 20220302, end: 20220518

REACTIONS (1)
  - Skin mass [Recovering/Resolving]

NARRATIVE: CASE EVENT DATE: 20220531
